FAERS Safety Report 25405712 (Version 1)
Quarter: 2025Q2

REPORT INFORMATION
  Report Type: Spontaneous
  Country: US (occurrence: US)
  Receive Date: 20250606
  Receipt Date: 20250606
  Transmission Date: 20250716
  Serious: No
  Sender: ABBVIE
  Company Number: US-ABBVIE-6309846

PATIENT
  Sex: Female

DRUGS (1)
  1. ARMOUR THYROID [Suspect]
     Active Substance: THYROID, PORCINE
     Indication: Hypothyroidism
     Route: 048

REACTIONS (8)
  - Abdominal distension [Unknown]
  - Product dispensing error [Unknown]
  - Brain fog [Unknown]
  - Headache [Unknown]
  - Mood altered [Unknown]
  - Fatigue [Unknown]
  - Anger [Unknown]
  - Feeling abnormal [Unknown]
